FAERS Safety Report 9391856 (Version 2)
Quarter: 2013Q3

REPORT INFORMATION
  Report Type: Report from Study
  Country: IT (occurrence: IT)
  Receive Date: 20130709
  Receipt Date: 20130802
  Transmission Date: 20140515
  Serious: Yes (Hospitalization, Other)
  Sender: FDA-Public Use
  Company Number: IT-TEVA-417861USA

PATIENT
  Age: 63 Year
  Sex: Male
  Weight: 63 kg

DRUGS (8)
  1. BENDAMUSTINE [Suspect]
     Indication: MANTLE CELL LYMPHOMA
     Route: 042
     Dates: start: 20110505
  2. BENDAMUSTINE [Suspect]
     Route: 042
     Dates: start: 20110819
  3. OFATUMUMAB [Suspect]
     Indication: MANTLE CELL LYMPHOMA
     Route: 042
     Dates: start: 20110504
  4. OFATUMUMAB [Suspect]
     Route: 042
     Dates: start: 20110817
  5. DEXAMETHASONE [Suspect]
     Indication: MANTLE CELL LYMPHOMA
     Dates: start: 20110504, end: 20110819
  6. LEVOXACIN [Concomitant]
     Indication: ANTIBIOTIC PROPHYLAXIS
     Route: 048
     Dates: start: 20111028, end: 20111108
  7. ZEFFIX [Concomitant]
     Indication: ANTIVIRAL TREATMENT
     Route: 048
     Dates: start: 20110506
  8. ANTRA [Concomitant]
     Indication: PROPHYLAXIS AGAINST GASTROINTESTINAL ULCER
     Route: 048
     Dates: start: 20110506

REACTIONS (1)
  - Pulmonary embolism [Recovered/Resolved]
